FAERS Safety Report 12142473 (Version 1)
Quarter: 2016Q1

REPORT INFORMATION
  Report Type: Report from Study
  Country: US (occurrence: US)
  Receive Date: 20160303
  Receipt Date: 20160303
  Transmission Date: 20160526
  Serious: Yes (Hospitalization)
  Sender: FDA-Public Use
  Company Number: US-KADMON PHARMACEUTICALS, LLC-KAD201601-000121

PATIENT
  Age: 45 Year
  Sex: Female

DRUGS (10)
  1. BIOTIN [Concomitant]
     Active Substance: BIOTIN
  2. ZOFRAN [Concomitant]
     Active Substance: ONDANSETRON HYDROCHLORIDE
  3. NEURONTIN [Concomitant]
     Active Substance: GABAPENTIN
  4. RIBASPHERE [Suspect]
     Active Substance: RIBAVIRIN
     Indication: HEPATITIS C
     Route: 048
     Dates: start: 201508, end: 20151116
  5. VIEKIRA PAK [Suspect]
     Active Substance: DASABUVIR\OMBITASVIR\PARITAPREVIR\RITONAVIR
     Indication: HEPATITIS C
     Dosage: TABLET; TWO PINK IN MORNING + ONE BEIGE TWICE A DAY (MORNING AND EVENING)
     Route: 048
     Dates: start: 20150828
  6. OXYCODONE [Concomitant]
     Active Substance: OXYCODONE
  7. PREMARIN [Concomitant]
     Active Substance: ESTROGENS, CONJUGATED
  8. XANAX [Concomitant]
     Active Substance: ALPRAZOLAM
  9. VITAMIN E [Concomitant]
     Active Substance: .ALPHA.-TOCOPHEROL
  10. MULTIVITAMIN [Concomitant]
     Active Substance: VITAMINS

REACTIONS (14)
  - Abdominal pain [Unknown]
  - Infection [Recovered/Resolved]
  - Dizziness [Unknown]
  - Aspartate aminotransferase increased [Unknown]
  - Rash [Recovered/Resolved]
  - Asthenia [Unknown]
  - Pyrexia [Recovered/Resolved]
  - Corona virus infection [Recovered/Resolved]
  - Protein total increased [Unknown]
  - Blood bilirubin increased [Unknown]
  - Red blood cell count decreased [Unknown]
  - Drug hypersensitivity [Unknown]
  - Tremor [Unknown]
  - Haemoglobin decreased [Unknown]

NARRATIVE: CASE EVENT DATE: 2015
